FAERS Safety Report 7623668-5 (Version None)
Quarter: 2011Q3

REPORT INFORMATION
  Report Type: 
  Country: None (occurrence: None)
  Receive Date: 20110720
  Receipt Date: 20110715
  Transmission Date: 20111222
  Serious: Yes (Hospitalization)
  Sender: FDA-Public Use
  Company Number: US-B.I. PHARMACEUTICALS,INC./RIDGEFIELD-2011-BP-17873BP

PATIENT
  Sex: Female

DRUGS (9)
  1. ASPIRIN [Concomitant]
     Indication: HYPERTENSION
     Dosage: 81 MG
     Route: 048
     Dates: start: 20070101
  2. LASIX [Concomitant]
     Indication: HYPERTENSION
     Dosage: 100 MG
     Route: 048
     Dates: start: 20070101
  3. PROTONIX [Concomitant]
     Indication: GASTROOESOPHAGEAL REFLUX DISEASE
     Dosage: 40 MG
     Route: 048
     Dates: start: 19990101
  4. DIOVAN [Concomitant]
     Indication: HYPERTENSION
     Dosage: 160 MG
     Route: 048
     Dates: start: 20070101
  5. ZOLOFT [Concomitant]
     Indication: DEPRESSION
     Dosage: 25 MG
     Route: 048
     Dates: start: 20070101
  6. PRAVASTATIN [Concomitant]
     Indication: BLOOD CHOLESTEROL INCREASED
     Dosage: 80 MG
     Route: 048
     Dates: start: 20070101
  7. SYNTHROID [Concomitant]
     Indication: HYPOTHYROIDISM
     Dosage: 112 MCG
     Route: 048
     Dates: start: 19900101
  8. TOPROL-XL [Concomitant]
     Indication: HYPERTENSION
     Dosage: 25 MG
     Route: 048
     Dates: start: 20070101
  9. PRADAXA [Suspect]
     Indication: ATRIAL FIBRILLATION
     Dosage: 300 MG
     Route: 048
     Dates: start: 20110401, end: 20110527

REACTIONS (1)
  - POST PROCEDURAL HAEMORRHAGE [None]
